FAERS Safety Report 12798978 (Version 1)
Quarter: 2016Q3

REPORT INFORMATION
  Report Type: Spontaneous
  Country: US (occurrence: US)
  Receive Date: 20160930
  Receipt Date: 20160930
  Transmission Date: 20161109
  Serious: Yes (Other)
  Sender: FDA-Public Use
  Company Number: None

PATIENT
  Age: 40 Year
  Sex: Male
  Weight: 108 kg

DRUGS (3)
  1. OMEPRAZOLE. [Concomitant]
     Active Substance: OMEPRAZOLE
  2. ASA [Concomitant]
     Active Substance: ASPIRIN
  3. CIMZIA [Suspect]
     Active Substance: CERTOLIZUMAB PEGOL
     Indication: ARTHRITIS
     Dosage: ?          QUANTITY:2 INJECTION(S);OTHER FREQUENCY:MONTHLY;?
     Route: 058
     Dates: start: 20160921, end: 20160930

REACTIONS (5)
  - Depression [None]
  - Paranoia [None]
  - Abdominal pain upper [None]
  - Headache [None]
  - Hypertension [None]

NARRATIVE: CASE EVENT DATE: 20160928
